FAERS Safety Report 7592602-9 (Version None)
Quarter: 2011Q3

REPORT INFORMATION
  Report Type: 
  Country: None (occurrence: None)
  Receive Date: 20110706
  Receipt Date: 20110628
  Transmission Date: 20111222
  Serious: Yes (Hospitalization)
  Sender: FDA-Public Use
  Company Number: US-B.I. PHARMACEUTICALS,INC./RIDGEFIELD-2011-BP-08904BP

PATIENT
  Age: 44 Year
  Sex: Male
  Weight: 100 kg

DRUGS (3)
  1. PRADAXA [Suspect]
     Indication: ATRIAL FIBRILLATION
     Dosage: 300 MG
     Dates: end: 20110318
  2. VERAPAMIL EXTENDED-RELEASE [Concomitant]
     Dosage: 240 MG
  3. CRESTOR [Concomitant]
     Dosage: 10 MG

REACTIONS (1)
  - HAEMOTHORAX [None]
